FAERS Safety Report 13951324 (Version 2)
Quarter: 2017Q4

REPORT INFORMATION
  Report Type: Spontaneous
  Country: US (occurrence: US)
  Receive Date: 20170908
  Receipt Date: 20171031
  Transmission Date: 20180320
  Serious: No
  Sender: FDA-Public Use
  Company Number: US-ASTRAZENECA-2017SE91779

PATIENT
  Sex: Female

DRUGS (1)
  1. PULMICORT FLEXHALER [Suspect]
     Active Substance: BUDESONIDE
     Route: 055

REACTIONS (3)
  - Drug dose omission [Unknown]
  - Malaise [Unknown]
  - Device issue [Unknown]
